FAERS Safety Report 9205285 (Version 1)
Quarter: 2013Q2

REPORT INFORMATION
  Report Type: Spontaneous
  Country: US (occurrence: US)
  Receive Date: 20130402
  Receipt Date: 20130402
  Transmission Date: 20140414
  Serious: Yes (Death)
  Sender: FDA-Public Use
  Company Number: US-PFIZER INC-2013101524

PATIENT
  Age: 5 Year
  Sex: 0

DRUGS (1)
  1. GENOTROPIN MQ [Suspect]
     Dosage: 0.6 MG, UNK

REACTIONS (1)
  - Death [Fatal]
